FAERS Safety Report 4717782-1 (Version None)
Quarter: 2005Q3

REPORT INFORMATION
  Report Type: 
  Country: None (occurrence: None)
  Receive Date: 20050718
  Receipt Date: 20050718
  Transmission Date: 20060218
  Serious: Yes (Disabling)
  Sender: FDA-Public Use
  Company Number: None

PATIENT
  Age: 49 Year
  Sex: Female
  Weight: 49.8957 kg

DRUGS (1)
  1. ADVAIR DISKUS 250/50 [Suspect]
     Dosage: ONCE DAILY
     Dates: start: 20050601, end: 20050615

REACTIONS (6)
  - ARTHRALGIA [None]
  - CHEST PAIN [None]
  - DECREASED ACTIVITY [None]
  - JOINT STIFFNESS [None]
  - PAIN IN EXTREMITY [None]
  - RHEUMATOID ARTHRITIS [None]
